FAERS Safety Report 15423823 (Version 1)
Quarter: 2018Q3

REPORT INFORMATION
  Report Type: Spontaneous
  Country: US (occurrence: US)
  Receive Date: 20180920
  Receipt Date: 20180920
  Transmission Date: 20181010
  Serious: No
  Sender: FDA-Public Use
  Company Number: None

PATIENT
  Age: 72 Year
  Sex: Female
  Weight: 48.15 kg

DRUGS (5)
  1. SOLGAR CALCIUM MAGNESIUM ZINC [Concomitant]
  2. ALENDRONATE [Suspect]
     Active Substance: ALENDRONATE SODIUM
     Indication: OSTEOPOROSIS
     Dosage: ?          QUANTITY:1 TABLET(S);?
     Route: 048
     Dates: start: 20180919, end: 20180919
  3. RAINBOW LIGHT MULTI VITAMIN [Concomitant]
  4. CARLSON D3 DROPS [Concomitant]
  5. COUNTRY LIFE VEGAN COQ10 [Concomitant]

REACTIONS (6)
  - Nausea [None]
  - Movement disorder [None]
  - Pain [None]
  - Headache [None]
  - Gait disturbance [None]
  - Pyrexia [None]

NARRATIVE: CASE EVENT DATE: 20180920
